FAERS Safety Report 23525473 (Version 1)
Quarter: 2024Q1

REPORT INFORMATION
  Report Type: Spontaneous
  Country: US (occurrence: None)
  Receive Date: 20240215
  Receipt Date: 20240215
  Transmission Date: 20240410
  Serious: Yes (Death)
  Sender: FDA-Public Use
  Company Number: US-MDD US Operations-MDD202402-000440

PATIENT
  Age: 78 Year
  Sex: Female

DRUGS (2)
  1. APOKYN [Suspect]
     Active Substance: APOMORPHINE HYDROCHLORIDE
     Indication: Parkinson^s disease
     Dosage: (MAINTENANCE DOSE START DATE: AUG 2023)
     Route: 058
     Dates: start: 202305
  2. APOKYN [Suspect]
     Active Substance: APOMORPHINE HYDROCHLORIDE
     Route: 058
     Dates: start: 20230613

REACTIONS (2)
  - Pneumonia [Fatal]
  - Hospice care [Unknown]

NARRATIVE: CASE EVENT DATE: 20230601
